FAERS Safety Report 4913658-5 (Version None)
Quarter: 2006Q1

REPORT INFORMATION
  Report Type: 
  Country: None (occurrence: None)
  Receive Date: 20060216
  Receipt Date: 20031110
  Transmission Date: 20060701
  Serious: Yes (Hospitalization, Other)
  Sender: FDA-Public Use
  Company Number: SE-ABBOTT-03P-150-0240625-00

PATIENT
  Sex: Female

DRUGS (6)
  1. HUMIRA [Suspect]
     Indication: RHEUMATOID ARTHRITIS
     Route: 058
     Dates: start: 20031016, end: 20031030
  2. PREDNISOLONE [Concomitant]
     Route: 048
  3. IBUPROFEN [Concomitant]
     Route: 048
  4. RISEDRONATE SODIUM [Concomitant]
     Route: 048
  5. BENDROFLUMETHIAZIDE [Concomitant]
     Route: 048
  6. LEKOVIT CA [Concomitant]
     Route: 048

REACTIONS (7)
  - CHEST DISCOMFORT [None]
  - CHEST PAIN [None]
  - HEADACHE [None]
  - NAUSEA [None]
  - SKIN DISORDER [None]
  - SUPRAVENTRICULAR TACHYCARDIA [None]
  - URTICARIA [None]
